FAERS Safety Report 8827296 (Version 1)
Quarter: 2012Q4

REPORT INFORMATION
  Report Type: 
  Country: US (occurrence: US)
  Receive Date: 20121005
  Receipt Date: 20121005
  Transmission Date: 20130627
  Serious: Yes (Hospitalization)
  Sender: FDA-Public Use
  Company Number: US-ENDO PHARMACEUTICALS INC.-PMES20120001

PATIENT
  Sex: Female

DRUGS (2)
  1. PROMETHAZINE HYDROCHLORIDE [Suspect]
     Indication: NAUSEA
     Dosage: UNKNOWN
     Route: 048
     Dates: start: 201209
  2. PROMETHAZINE HYDROCHLORIDE [Suspect]
     Indication: VOMITING

REACTIONS (4)
  - Dyspnoea [Unknown]
  - Nausea [Unknown]
  - Vomiting [Unknown]
  - Drug ineffective [Unknown]
